FAERS Safety Report 6360605-8 (Version None)
Quarter: 2009Q3

REPORT INFORMATION
  Report Type: 
  Country: None (occurrence: None)
  Receive Date: 20090915
  Receipt Date: 20090902
  Transmission Date: 20100115
  Serious: No
  Sender: FDA-Public Use
  Company Number: KV200900743

PATIENT
  Sex: Female

DRUGS (1)
  1. REPLIVA 21/7(IRON SUPPLEMENT) TABLET [Suspect]
     Indication: ANAEMIA
     Dosage: ORAL
     Route: 048

REACTIONS (4)
  - DIARRHOEA [None]
  - DRUG EXPOSURE DURING PREGNANCY [None]
  - GASTROINTESTINAL DISORDER [None]
  - PREGNANCY [None]
